FAERS Safety Report 7878940-0 (Version None)
Quarter: 2011Q4

REPORT INFORMATION
  Report Type: 
  Country: None (occurrence: None)
  Receive Date: 20111021
  Receipt Date: 20110817
  Transmission Date: 20120403
  Serious: Yes (Other)
  Sender: FDA-Public Use
  Company Number: ALL1-2011-02553

PATIENT
  Age: 20 Year
  Sex: Male
  Weight: 87.5 kg

DRUGS (3)
  1. VYVANSE [Suspect]
     Indication: ATTENTION DEFICIT/HYPERACTIVITY DISORDER
     Dosage: 30 MG, 1X/DAY:QD, ORAL, 70 MG, 1X/DAY:QD, ORAL, 50 MG, 1X/DAY:QD, ORAL
     Route: 048
     Dates: start: 20080101
  2. VYVANSE [Suspect]
     Indication: ATTENTION DEFICIT/HYPERACTIVITY DISORDER
     Dosage: 30 MG, 1X/DAY:QD, ORAL, 70 MG, 1X/DAY:QD, ORAL, 50 MG, 1X/DAY:QD, ORAL
     Route: 048
     Dates: end: 20110101
  3. VYVANSE [Suspect]
     Indication: ATTENTION DEFICIT/HYPERACTIVITY DISORDER
     Dosage: 30 MG, 1X/DAY:QD, ORAL, 70 MG, 1X/DAY:QD, ORAL, 50 MG, 1X/DAY:QD, ORAL
     Route: 048
     Dates: end: 20110101

REACTIONS (7)
  - SOCIAL PHOBIA [None]
  - DEPRESSION [None]
  - DRUG INEFFECTIVE [None]
  - IMPULSIVE BEHAVIOUR [None]
  - PRODUCT QUALITY ISSUE [None]
  - PANIC REACTION [None]
  - DISTURBANCE IN ATTENTION [None]
